FAERS Safety Report 16545035 (Version 1)
Quarter: 2019Q3

REPORT INFORMATION
  Report Type: Spontaneous
  Country: FR (occurrence: FR)
  Receive Date: 20190709
  Receipt Date: 20190709
  Transmission Date: 20191004
  Serious: Yes (Hospitalization, Other)
  Sender: FDA-Public Use
  Company Number: FR-MYLANLABS-2019M1062327

PATIENT
  Age: 25 Year
  Sex: Female
  Weight: 60 kg

DRUGS (9)
  1. IMUREL                             /00001501/ [Concomitant]
     Active Substance: AZATHIOPRINE SODIUM
     Indication: CROHN^S DISEASE
     Dosage: 125 MILLIGRAM/KILOGRAM, QD
     Route: 048
  2. REMICADE [Suspect]
     Active Substance: INFLIXIMAB
     Indication: ENTERITIS
     Dosage: UNK, 8 WEEKS, DOSAGE FORM: LYOPHILIZED POWDER, 6TH INFUSION
     Route: 042
  3. FERROUS SULFATE. [Concomitant]
     Active Substance: FERROUS SULFATE
     Dosage: 80 MILLIGRAM, QD,DOSAGE FORM: UNSPECIFIED
     Route: 065
  4. REMICADE [Suspect]
     Active Substance: INFLIXIMAB
     Dosage: UNK, 8 WEEKS, DOSAGE FORM: LYOPHILIZED POWDER, 6TH INFUSION
     Route: 042
  5. GLUCOSE [Concomitant]
     Active Substance: DEXTROSE
     Dosage: 100 MILLILITER,DOSAGE FORM: UNSPECIFIED
     Route: 065
  6. POLARAMINE [Suspect]
     Active Substance: DEXCHLORPHENIRAMINE MALEATE
     Indication: PROPHYLAXIS
     Dosage: 5 MILLIGRAM, QD,DOSAGE FORM: UNKNOWN
     Route: 042
     Dates: start: 20051102, end: 20051102
  7. HYDROCORTISONE. [Suspect]
     Active Substance: HYDROCORTISONE
     Indication: PROPHYLAXIS
     Dosage: 200 MILLIGRAM, TOTAL,DOSAGE FORM: UNKNOWN
     Route: 042
     Dates: start: 20051102, end: 20051102
  8. REMICADE [Suspect]
     Active Substance: INFLIXIMAB
     Indication: CROHN^S DISEASE
     Dosage: 300 MILLIGRAM, TOTAL,DOSAGE FORM: LYOPHILIZED POWDER, 6TH INFUSION
     Route: 042
     Dates: start: 20051102, end: 20051102
  9. REMICADE [Suspect]
     Active Substance: INFLIXIMAB
     Dosage: 300 MILLIGRAM, TOTAL,DOSAGE FORM: LYOPHILIZED POWDER, 6TH INFUSION
     Route: 042
     Dates: start: 20051102, end: 20051102

REACTIONS (5)
  - Atrioventricular block complete [Recovered/Resolved]
  - Loss of consciousness [Recovered/Resolved]
  - Malaise [Recovered/Resolved]
  - Syncope [Recovered/Resolved]
  - Adams-Stokes syndrome [Recovered/Resolved]

NARRATIVE: CASE EVENT DATE: 20051102
